FAERS Safety Report 6611811-6 (Version None)
Quarter: 2010Q1

REPORT INFORMATION
  Report Type: 
  Country: None (occurrence: None)
  Receive Date: 20100225
  Receipt Date: 20100225
  Transmission Date: 20100710
  Serious: Yes (Other)
  Sender: FDA-Public Use
  Company Number: None

PATIENT
  Age: 6 Year
  Sex: Male
  Weight: 24.9478 kg

DRUGS (1)
  1. OXCARBAZEPINE [Suspect]
     Indication: CONVULSION
     Dosage: 300MG/5ML 2X A DAY PO
     Route: 048
     Dates: start: 20100126, end: 20100225

REACTIONS (2)
  - PRODUCT SUBSTITUTION ISSUE [None]
  - TOOTH DISCOLOURATION [None]
